FAERS Safety Report 20988488 (Version 1)
Quarter: 2022Q2

REPORT INFORMATION
  Report Type: Report from Study
  Country: None (occurrence: US)
  Receive Date: 20220621
  Receipt Date: 20220621
  Transmission Date: 20220721
  Serious: Yes (Disabling)
  Sender: FDA-Public Use
  Company Number: US-XGen Pharmaceuticals DJB, Inc.-2130126

PATIENT
  Age: 51 Year
  Sex: Male

DRUGS (1)
  1. TRANEXAMIC ACID [Suspect]
     Active Substance: TRANEXAMIC ACID

REACTIONS (5)
  - Myoclonic epilepsy [Unknown]
  - Ventricular arrhythmia [Unknown]
  - Encephalopathy [Unknown]
  - Facial paralysis [Unknown]
  - Cauda equina syndrome [Unknown]
